FAERS Safety Report 24330095 (Version 2)
Quarter: 2024Q4

REPORT INFORMATION
  Report Type: Report from Study
  Country: US (occurrence: US)
  Receive Date: 20240917
  Receipt Date: 20241015
  Transmission Date: 20250114
  Serious: Yes (Other)
  Sender: ALEXION PHARMACEUTICALS
  Company Number: 2024A209828

PATIENT

DRUGS (42)
  1. TAGRISSO [Suspect]
     Active Substance: OSIMERTINIB
     Indication: Lung carcinoma cell type unspecified stage 0
     Dosage: 80 MILLIGRAM, QD
  2. TAGRISSO [Suspect]
     Active Substance: OSIMERTINIB
     Dosage: 80 MILLIGRAM, QD
  3. TAGRISSO [Suspect]
     Active Substance: OSIMERTINIB
     Dosage: 80 MILLIGRAM, QD
  4. TAGRISSO [Suspect]
     Active Substance: OSIMERTINIB
     Dosage: 80 MILLIGRAM, QD
  5. FARXIGA [Suspect]
     Active Substance: DAPAGLIFLOZIN PROPANEDIOL
     Dosage: 10 MILLIGRAM, UNK, FREQUENCY: UNK
  6. FARXIGA [Suspect]
     Active Substance: DAPAGLIFLOZIN PROPANEDIOL
     Dosage: 10 MILLIGRAM, UNK, FREQUENCY: UNK
  7. FARXIGA [Suspect]
     Active Substance: DAPAGLIFLOZIN PROPANEDIOL
     Dosage: 10 MILLIGRAM, UNK, FREQUENCY: UNK
  8. FARXIGA [Suspect]
     Active Substance: DAPAGLIFLOZIN PROPANEDIOL
     Dosage: 10 MILLIGRAM, UNK, FREQUENCY: UNK
  9. OMEPRAZOLE [Suspect]
     Active Substance: OMEPRAZOLE
     Dosage: 20 MILLIGRAM, UNK, FREQUENCY: UNK
  10. OMEPRAZOLE [Suspect]
     Active Substance: OMEPRAZOLE
     Dosage: 20 MILLIGRAM, UNK, FREQUENCY: UNK
  11. OMEPRAZOLE [Suspect]
     Active Substance: OMEPRAZOLE
     Dosage: 20 MILLIGRAM, UNK, FREQUENCY: UNK
  12. OMEPRAZOLE [Suspect]
     Active Substance: OMEPRAZOLE
     Dosage: 20 MILLIGRAM, UNK, FREQUENCY: UNK
  13. LATANOPROST [Concomitant]
     Active Substance: LATANOPROST
  14. CLINDAMYCIN [Concomitant]
     Active Substance: CLINDAMYCIN
  15. CLINDAMYCIN [Concomitant]
     Active Substance: CLINDAMYCIN
  16. ACETAMINOPHEN [Concomitant]
     Active Substance: ACETAMINOPHEN
  17. ACETAMINOPHEN [Concomitant]
     Active Substance: ACETAMINOPHEN
  18. BREO ELLIPTA [Concomitant]
     Active Substance: FLUTICASONE FUROATE\VILANTEROL TRIFENATATE
     Dosage: 100-25 MC
  19. BREO ELLIPTA [Concomitant]
     Active Substance: FLUTICASONE FUROATE\VILANTEROL TRIFENATATE
     Dosage: 100-25 MC
  20. UNSPECIFIED INGREDIENT [Concomitant]
     Active Substance: UNSPECIFIED INGREDIENT
     Dosage: 600-10MG
  21. UNSPECIFIED INGREDIENT [Concomitant]
     Active Substance: UNSPECIFIED INGREDIENT
     Dosage: 250 MG
  22. UNSPECIFIED INGREDIENT [Concomitant]
     Active Substance: UNSPECIFIED INGREDIENT
     Dosage: 250 MG
  23. MECLIZINE [Concomitant]
     Active Substance: MECLIZINE HYDROCHLORIDE
  24. MECLIZINE [Concomitant]
     Active Substance: MECLIZINE HYDROCHLORIDE
  25. METFORMIN [Concomitant]
     Active Substance: METFORMIN HYDROCHLORIDE
  26. METFORMIN [Concomitant]
     Active Substance: METFORMIN HYDROCHLORIDE
  27. MIRALAX [Concomitant]
     Active Substance: POLYETHYLENE GLYCOL 3350
  28. MIRALAX [Concomitant]
     Active Substance: POLYETHYLENE GLYCOL 3350
  29. MUPIROCIN [Concomitant]
     Active Substance: MUPIROCIN
  30. MUPIROCIN [Concomitant]
     Active Substance: MUPIROCIN
  31. PRAVASTATIN [Concomitant]
     Active Substance: PRAVASTATIN
  32. PRAVASTATIN [Concomitant]
     Active Substance: PRAVASTATIN
  33. STOOL SOFTENER (DOCUSATE) [Concomitant]
     Active Substance: DOCUSATE
  34. STOOL SOFTENER (DOCUSATE) [Concomitant]
     Active Substance: DOCUSATE
  35. TAMSULOSIN HYDROCHLORIDE [Concomitant]
     Active Substance: TAMSULOSIN HYDROCHLORIDE
  36. TAMSULOSIN HYDROCHLORIDE [Concomitant]
     Active Substance: TAMSULOSIN HYDROCHLORIDE
  37. TERBINAFINE [Concomitant]
     Active Substance: TERBINAFINE\TERBINAFINE HYDROCHLORIDE
  38. TERBINAFINE [Concomitant]
     Active Substance: TERBINAFINE\TERBINAFINE HYDROCHLORIDE
  39. VENLAFAXINE [Concomitant]
     Active Substance: VENLAFAXINE HYDROCHLORIDE
  40. VENLAFAXINE [Concomitant]
     Active Substance: VENLAFAXINE HYDROCHLORIDE
  41. VITAMIN D [Concomitant]
     Active Substance: VITAMIN D NOS
  42. VITAMIN D [Concomitant]
     Active Substance: VITAMIN D NOS

REACTIONS (3)
  - Hernia [Unknown]
  - Fatigue [Not Recovered/Not Resolved]
  - Dyspnoea [Not Recovered/Not Resolved]
